FAERS Safety Report 6812214-1 (Version None)
Quarter: 2010Q3

REPORT INFORMATION
  Report Type: 
  Country: None (occurrence: None)
  Receive Date: 20100701
  Receipt Date: 20100622
  Transmission Date: 20110219
  Serious: Yes (Other)
  Sender: FDA-Public Use
  Company Number: US-BAYER-201018717NA

PATIENT
  Age: 56 Year
  Sex: Female
  Weight: 56 kg

DRUGS (26)
  1. MAGNEVIST [Suspect]
     Indication: NUCLEAR MAGNETIC RESONANCE IMAGING
     Route: 042
     Dates: start: 20041014, end: 20041014
  2. MAGNEVIST [Suspect]
     Route: 042
     Dates: start: 20050628, end: 20050628
  3. OMNISCAN [Suspect]
     Indication: IMAGING PROCEDURE
  4. OPTIMARK [Suspect]
     Indication: IMAGING PROCEDURE
  5. MULTIHANCE [Suspect]
     Indication: IMAGING PROCEDURE
  6. PROHANCE [Suspect]
     Indication: IMAGING PROCEDURE
  7. UNSPECIFIED GADOLINIUM-BASED CONTRAST AGENT [Suspect]
     Indication: NUCLEAR MAGNETIC RESONANCE IMAGING
     Dates: start: 20060919, end: 20060919
  8. UNSPECIFIED GADOLINIUM-BASED CONTRAST AGENT [Suspect]
     Dates: start: 20060511, end: 20060511
  9. UNSPECIFIED GADOLINIUM-BASED CONTRAST AGENT [Suspect]
     Dates: start: 20051209, end: 20051209
  10. RENAGEL [Concomitant]
     Dosage: TOTAL DAILY DOSE: 7.2 G
     Route: 048
     Dates: start: 20050701
  11. PREDNISONE TAB [Concomitant]
  12. COUMADIN [Concomitant]
     Dosage: TOTAL DAILY DOSE: 6 MG
     Route: 048
     Dates: start: 20050701
  13. ^PENSIPAR^ [Concomitant]
  14. EPOGEN [Concomitant]
  15. IRON/IRON SUPPLEMENTS [Concomitant]
  16. IMMUNOSUPPRESSANTS [Concomitant]
  17. CONTRAST UNSPECIFIED [Concomitant]
     Dates: start: 20040811, end: 20040811
  18. CONTRAST UNSPECIFIED [Concomitant]
     Dates: start: 20040806, end: 20040806
  19. CONTRAST UNSPECIFIED [Concomitant]
     Dates: start: 20060615, end: 20060615
  20. CONTRAST UNSPECIFIED [Concomitant]
     Dates: start: 20050507, end: 20050507
  21. CONTRAST UNSPECIFIED [Concomitant]
     Dates: start: 20041010, end: 20041010
  22. CONTRAST UNSPECIFIED [Concomitant]
     Dates: start: 20040822, end: 20040822
  23. CONTRAST UNSPECIFIED [Concomitant]
     Dates: start: 20050218, end: 20050218
  24. CONTRAST UNSPECIFIED [Concomitant]
     Dates: start: 20050518, end: 20050518
  25. PROCARDIA XL [Concomitant]
     Route: 048
     Dates: start: 20050630
  26. BLOOD PRESSURE MEDICATIONS [Concomitant]

REACTIONS (19)
  - ARTHRALGIA [None]
  - BURNING SENSATION [None]
  - DEFORMITY [None]
  - ERYTHEMA [None]
  - EXFOLIATIVE RASH [None]
  - EXTREMITY CONTRACTURE [None]
  - GENERAL PHYSICAL HEALTH DETERIORATION [None]
  - JOINT RANGE OF MOTION DECREASED [None]
  - JOINT STIFFNESS [None]
  - LOWER EXTREMITY MASS [None]
  - MUSCLE CONTRACTURE [None]
  - NEPHROGENIC SYSTEMIC FIBROSIS [None]
  - OEDEMA PERIPHERAL [None]
  - PAIN OF SKIN [None]
  - PEAU D'ORANGE [None]
  - SCAR [None]
  - SKIN DISCOLOURATION [None]
  - SKIN INDURATION [None]
  - UPPER EXTREMITY MASS [None]
